FAERS Safety Report 15851688 (Version 1)
Quarter: 2019Q1

REPORT INFORMATION
  Report Type: Report from Study
  Country: SE (occurrence: SE)
  Receive Date: 20190122
  Receipt Date: 20190122
  Transmission Date: 20190417
  Serious: Yes (Death, Hospitalization, Other)
  Sender: FDA-Public Use
  Company Number: SE-TEVA-2019-SE-1000867

PATIENT
  Sex: Male

DRUGS (2)
  1. BRIVUDINE [Interacting]
     Active Substance: BRIVUDINE
     Indication: HERPES ZOSTER
     Route: 065
  2. 5-FLUOROURACIL [Suspect]
     Active Substance: FLUOROURACIL
     Indication: COLON CANCER
     Route: 065

REACTIONS (4)
  - Mucosal inflammation [Unknown]
  - Bone marrow failure [Unknown]
  - Labelled drug-drug interaction medication error [Unknown]
  - Death [Fatal]
